FAERS Safety Report 20335998 (Version 1)
Quarter: 2022Q1

REPORT INFORMATION
  Report Type: Spontaneous
  Country: AR (occurrence: AR)
  Receive Date: 20220114
  Receipt Date: 20220114
  Transmission Date: 20220424
  Serious: Yes (Life-Threatening, Other)
  Sender: FDA-Public Use
  Company Number: AR-NOVARTISPH-NVSC2022AR007521

PATIENT
  Age: 60 Year
  Sex: Female

DRUGS (2)
  1. TRILEPTAL [Suspect]
     Active Substance: OXCARBAZEPINE
     Indication: Epilepsy
     Dosage: 300 MG
     Route: 065
  2. TRILEPTAL [Suspect]
     Active Substance: OXCARBAZEPINE
     Dosage: 1 OF 600(IN THE MORNING AND AT NIGHT)MORE THAN 10 YEARS AGO
     Route: 065

REACTIONS (12)
  - Condition aggravated [Unknown]
  - Cerebrovascular accident [Unknown]
  - Epilepsy [Unknown]
  - Neoplasm malignant [Unknown]
  - Laryngeal oedema [Unknown]
  - COVID-19 [Unknown]
  - Panic attack [Not Recovered/Not Resolved]
  - Fear [Unknown]
  - Thermal burn [Unknown]
  - Wound [Unknown]
  - Cardiac disorder [Unknown]
  - Asthma [Unknown]

NARRATIVE: CASE EVENT DATE: 20200301
